FAERS Safety Report 15475126 (Version 1)
Quarter: 2018Q4

REPORT INFORMATION
  Report Type: Spontaneous
  Country: US (occurrence: US)
  Receive Date: 20181008
  Receipt Date: 20181008
  Transmission Date: 20190205
  Serious: No
  Sender: FDA-Public Use
  Company Number: US-SA-2018SA272862

PATIENT
  Sex: Female

DRUGS (13)
  1. AUBAGIO [Suspect]
     Active Substance: TERIFLUNOMIDE
     Dosage: 14 MG, QD
     Route: 048
     Dates: start: 201808
  2. METHYLPREDNISOLONE. [Concomitant]
     Active Substance: METHYLPREDNISOLONE
  3. COUMADIN [Concomitant]
     Active Substance: WARFARIN SODIUM
  4. FLUTICASONE PROPIONATE. [Concomitant]
     Active Substance: FLUTICASONE PROPIONATE
  5. METOPROLOL TARTRATE. [Concomitant]
     Active Substance: METOPROLOL TARTRATE
  6. VERAPAMIL HCL [Concomitant]
     Active Substance: VERAPAMIL HYDROCHLORIDE
  7. PREDNISONE. [Concomitant]
     Active Substance: PREDNISONE
  8. ALLOPURINOL. [Concomitant]
     Active Substance: ALLOPURINOL
  9. GABAPENTIN. [Concomitant]
     Active Substance: GABAPENTIN
  10. BACLOFEN. [Concomitant]
     Active Substance: BACLOFEN
  11. MULTAQ [Concomitant]
     Active Substance: DRONEDARONE
  12. VENIPUNCTURE CPI [Concomitant]
     Active Substance: LIDOCAINE\PRILOCAINE
  13. AMOXICILLIN TRIHYDRATE;CLAVULANATE POTASSIUM [Concomitant]

REACTIONS (1)
  - Abdominal discomfort [Not Recovered/Not Resolved]
